FAERS Safety Report 19360111 (Version 2)
Quarter: 2023Q2

REPORT INFORMATION
  Report Type: Other
  Country: JP (occurrence: JP)
  Receive Date: 20210601
  Receipt Date: 20230620
  Transmission Date: 20230721
  Serious: Yes (Other)
  Sender: FDA-Public Use
  Company Number: JP-CHUGAI-A2021015078ROCHE

PATIENT
  Age: 41 Year
  Sex: Male
  Weight: 78 kg

DRUGS (19)
  1. OBINUTUZUMAB [Suspect]
     Active Substance: OBINUTUZUMAB
     Indication: Follicular lymphoma
     Dosage: 1000 MILLIGRAM, QD
     Route: 041
     Dates: start: 20200827, end: 20200827
  2. OBINUTUZUMAB [Suspect]
     Active Substance: OBINUTUZUMAB
     Dosage: 1000 MILLIGRAM, QD
     Route: 041
     Dates: start: 20201006, end: 20201006
  3. OBINUTUZUMAB [Suspect]
     Active Substance: OBINUTUZUMAB
     Dosage: 1000 MILLIGRAM, QD
     Route: 041
     Dates: start: 20201110, end: 20201110
  4. OBINUTUZUMAB [Suspect]
     Active Substance: OBINUTUZUMAB
     Dosage: 1000 MILLIGRAM, QD
     Route: 041
     Dates: start: 20201208, end: 20201208
  5. OBINUTUZUMAB [Suspect]
     Active Substance: OBINUTUZUMAB
     Dosage: 1000 MILLIGRAM, QD
     Route: 041
     Dates: start: 20210105, end: 20210105
  6. OBINUTUZUMAB [Suspect]
     Active Substance: OBINUTUZUMAB
     Dosage: 1000 MILLIGRAM, QD
     Route: 041
     Dates: start: 20210202, end: 20210202
  7. OBINUTUZUMAB [Suspect]
     Active Substance: OBINUTUZUMAB
     Dosage: 1000 MILLIGRAM, QD
     Route: 041
     Dates: start: 20210413, end: 20210413
  8. OBINUTUZUMAB [Suspect]
     Active Substance: OBINUTUZUMAB
     Dosage: 1000 MILLIGRAM, QD
     Route: 041
     Dates: start: 20210608, end: 20210608
  9. OBINUTUZUMAB [Suspect]
     Active Substance: OBINUTUZUMAB
     Dosage: 1000 MILLIGRAM, QD
     Route: 041
     Dates: start: 20210803, end: 20210803
  10. OBINUTUZUMAB [Suspect]
     Active Substance: OBINUTUZUMAB
     Dosage: 1000 MILLIGRAM, QD
     Route: 041
     Dates: start: 20210928, end: 20210928
  11. OBINUTUZUMAB [Suspect]
     Active Substance: OBINUTUZUMAB
     Dosage: 1000 MILLIGRAM, QD
     Route: 041
     Dates: start: 20211130, end: 20211130
  12. OBINUTUZUMAB [Suspect]
     Active Substance: OBINUTUZUMAB
     Dosage: 1000 MILLIGRAM, QD
     Route: 041
     Dates: start: 20220125, end: 20220125
  13. OBINUTUZUMAB [Suspect]
     Active Substance: OBINUTUZUMAB
     Dosage: 1000 MILLIGRAM, QD
     Route: 041
     Dates: start: 20220322, end: 20220322
  14. OBINUTUZUMAB [Suspect]
     Active Substance: OBINUTUZUMAB
     Dosage: 1000 MILLIGRAM, QD
     Route: 041
     Dates: start: 20220517, end: 20220517
  15. OBINUTUZUMAB [Suspect]
     Active Substance: OBINUTUZUMAB
     Dosage: 1000 MILLIGRAM, QD
     Route: 041
     Dates: start: 20220712, end: 20220712
  16. OBINUTUZUMAB [Suspect]
     Active Substance: OBINUTUZUMAB
     Dosage: 1000 MILLIGRAM, QD
     Route: 041
     Dates: start: 20220913, end: 20220913
  17. OBINUTUZUMAB [Suspect]
     Active Substance: OBINUTUZUMAB
     Dosage: 1000 MILLIGRAM, QD
     Route: 041
     Dates: start: 20221115, end: 20221115
  18. OBINUTUZUMAB [Suspect]
     Active Substance: OBINUTUZUMAB
     Dosage: 1000 MILLIGRAM, QD?MOST RECENT DOSE RECEIVED ON 10/JAN/2023.
     Route: 041
     Dates: start: 20230110
  19. BENDAMUSTINE HYDROCHLORIDE [Suspect]
     Active Substance: BENDAMUSTINE HYDROCHLORIDE
     Indication: Follicular lymphoma
     Dosage: DOSAGE IS UNCERTAIN?ON 03/FEB/2021, HE RECEIVED MOST RECENT DOSE OF BENDAMUSTINE HYDROCHLORIDE PRIOR
     Route: 041
     Dates: start: 20200827

REACTIONS (2)
  - Myelosuppression [Recovered/Resolved]
  - Infusion related reaction [Recovered/Resolved]

NARRATIVE: CASE EVENT DATE: 20200827
